FAERS Safety Report 11318799 (Version 1)
Quarter: 2015Q3

REPORT INFORMATION
  Report Type: Spontaneous
  Country: IT (occurrence: IT)
  Receive Date: 20150729
  Receipt Date: 20150729
  Transmission Date: 20151125
  Serious: Yes (Death, Hospitalization)
  Sender: FDA-Public Use
  Company Number: IT-HOSPIRA-2548367

PATIENT
  Age: 67 Year
  Sex: Female

DRUGS (2)
  1. CISPLATIN. [Suspect]
     Active Substance: CISPLATIN
     Indication: PRODUCT USED FOR UNKNOWN INDICATION
     Dosage: DAILY
     Route: 042
     Dates: start: 20110112, end: 20110112
  2. GEMCITABINE HYDROCHLORIDE. [Suspect]
     Active Substance: GEMCITABINE HYDROCHLORIDE
     Indication: PRODUCT USED FOR UNKNOWN INDICATION
     Dosage: DAILY
     Route: 042
     Dates: start: 20110112, end: 20110112

REACTIONS (2)
  - Generalised tonic-clonic seizure [Fatal]
  - Sopor [Fatal]

NARRATIVE: CASE EVENT DATE: 20110119
